FAERS Safety Report 8273349-2 (Version None)
Quarter: 2012Q2

REPORT INFORMATION
  Report Type: 
  Country: None (occurrence: None)
  Receive Date: 20120409
  Receipt Date: 20120409
  Transmission Date: 20120825
  Serious: Yes (Hospitalization)
  Sender: FDA-Public Use
  Company Number: None

PATIENT
  Sex: Male
  Weight: 99.5 kg

DRUGS (2)
  1. TAXOTERE [Suspect]
     Dosage: 164 MG
     Dates: end: 20120327
  2. PREDNISONE TAB [Suspect]
     Dosage: 5 MG
     Dates: end: 20120405

REACTIONS (2)
  - BACTERIAL INFECTION [None]
  - SOFT TISSUE INFECTION [None]
